FAERS Safety Report 14565675 (Version 1)
Quarter: 2018Q1

REPORT INFORMATION
  Report Type: Spontaneous
  Country: US (occurrence: US)
  Receive Date: 20180222
  Receipt Date: 20180222
  Transmission Date: 20180509
  Serious: Yes (Other)
  Sender: FDA-Public Use
  Company Number: None

PATIENT
  Age: 51 Year
  Sex: Female
  Weight: 68.04 kg

DRUGS (1)
  1. BUPRENORPHINE/NALAXONE 8-2MG [Suspect]
     Active Substance: BUPRENORPHINE\NALOXONE
     Indication: DRUG DEPENDENCE
     Dosage: 8-2 MG 2 DAILY SUBLINGUAL TAB
     Route: 060
     Dates: start: 20171101, end: 20180221

REACTIONS (1)
  - Nausea [None]

NARRATIVE: CASE EVENT DATE: 20171101
